FAERS Safety Report 18361058 (Version 1)
Quarter: 2020Q4

REPORT INFORMATION
  Report Type: Spontaneous
  Country: BR (occurrence: BR)
  Receive Date: 20201008
  Receipt Date: 20201008
  Transmission Date: 20210114
  Serious: Yes (Other)
  Sender: FDA-Public Use
  Company Number: BR-GLAXOSMITHKLINE-BR2020AMR197127

PATIENT
  Sex: Male

DRUGS (5)
  1. FUROSEMIDE. [Suspect]
     Active Substance: FUROSEMIDE
     Indication: DIURETIC THERAPY
     Dosage: 40 MG
  2. SPIRONOLACTONE. [Suspect]
     Active Substance: SPIRONOLACTONE
     Indication: DIURETIC THERAPY
     Dosage: 25 MG
  3. COMBODART [Suspect]
     Active Substance: DUTASTERIDE\TAMSULOSIN
     Indication: BENIGN PROSTATIC HYPERPLASIA
     Dosage: 1 DF, QD
  4. LOSARTAN. [Suspect]
     Active Substance: LOSARTAN
     Indication: DYSURIA
     Dosage: UNK UNK, BID
  5. SELOZOK [Suspect]
     Active Substance: METOPROLOL SUCCINATE
     Indication: CARDIAC DISORDER
     Dosage: UNK

REACTIONS (10)
  - Ejaculation disorder [Unknown]
  - Drug withdrawal syndrome [Unknown]
  - Dysuria [Unknown]
  - Drug ineffective [Unknown]
  - Malaise [Unknown]
  - Libido decreased [Unknown]
  - Product complaint [Unknown]
  - Urinary retention [Unknown]
  - Nephrolithiasis [Unknown]
  - Prostatic disorder [Unknown]
